FAERS Safety Report 6872961-2 (Version None)
Quarter: 2010Q3

REPORT INFORMATION
  Report Type: 
  Country: None (occurrence: None)
  Receive Date: 20100723
  Receipt Date: 20081117
  Transmission Date: 20110219
  Serious: No
  Sender: FDA-Public Use
  Company Number: US-PFIZER INC-2008097413

PATIENT
  Sex: Male
  Weight: 79.545 kg

DRUGS (5)
  1. CHANTIX [Suspect]
     Indication: SMOKING CESSATION THERAPY
     Dates: start: 20080901, end: 20081110
  2. ZOLOFT [Interacting]
     Indication: PANIC ATTACK
     Dates: start: 20080801
  3. ZOLOFT [Interacting]
     Indication: ANXIETY
  4. ALL OTHER THERAPEUTIC PRODUCTS [Concomitant]
     Indication: PANIC ATTACK
  5. ALL OTHER THERAPEUTIC PRODUCTS [Concomitant]
     Indication: ANXIETY

REACTIONS (3)
  - CHEST PAIN [None]
  - DRUG INTERACTION [None]
  - PANIC ATTACK [None]
